FAERS Safety Report 24168545 (Version 1)
Quarter: 2024Q3

REPORT INFORMATION
  Report Type: Spontaneous
  Country: US (occurrence: US)
  Receive Date: 20240802
  Receipt Date: 20240802
  Transmission Date: 20241017
  Serious: Yes (Hospitalization)
  Sender: ROCHE
  Company Number: US-ROCHE-10000040479

PATIENT
  Age: 77 Year
  Sex: Male

DRUGS (1)
  1. ACTEMRA ACTPEN [Suspect]
     Active Substance: TOCILIZUMAB
     Indication: Giant cell arteritis
     Route: 058
     Dates: start: 202407

REACTIONS (3)
  - Cardiac disorder [Unknown]
  - Pulmonary oedema [Unknown]
  - Chest pain [Unknown]

NARRATIVE: CASE EVENT DATE: 20240701
